FAERS Safety Report 18002510 (Version 3)
Quarter: 2020Q3

REPORT INFORMATION
  Report Type: Spontaneous
  Country: BR (occurrence: BR)
  Receive Date: 20200709
  Receipt Date: 20200904
  Transmission Date: 20201103
  Serious: Yes (Hospitalization, Other)
  Sender: FDA-Public Use
  Company Number: BR-GLAXOSMITHKLINE-BR2015GSK040614

PATIENT
  Sex: Female
  Weight: 82 kg

DRUGS (10)
  1. BENLYSTA [Suspect]
     Active Substance: BELIMUMAB
     Dosage: 800 MG, UNK
     Dates: start: 20170915
  2. IMURAN [Concomitant]
     Active Substance: AZATHIOPRINE
     Indication: PRODUCT USED FOR UNKNOWN INDICATION
     Dosage: UNK
  3. PREDNISONE. [Concomitant]
     Active Substance: PREDNISONE
     Indication: PRODUCT USED FOR UNKNOWN INDICATION
     Dosage: 20 MG, QD
  4. BENLYSTA [Suspect]
     Active Substance: BELIMUMAB
     Indication: SYSTEMIC LUPUS ERYTHEMATOSUS
     Dosage: 800 MG, UNK
     Dates: start: 20150323
  5. CITALOPRAM [Concomitant]
     Active Substance: CITALOPRAM HYDROBROMIDE
     Indication: PRODUCT USED FOR UNKNOWN INDICATION
     Dosage: 10 MG, UNK
  6. HYDROXYCHLOROQUINE [Concomitant]
     Active Substance: HYDROXYCHLOROQUINE
     Indication: PRODUCT USED FOR UNKNOWN INDICATION
     Dosage: 150 MG, UNK
  7. METHYLPREDNISOLONE. [Concomitant]
     Active Substance: METHYLPREDNISOLONE
     Indication: PRODUCT USED FOR UNKNOWN INDICATION
     Dosage: UNK, 6 MG
  8. MAREVAN [Concomitant]
     Active Substance: WARFARIN SODIUM
     Indication: THROMBOSIS
     Dosage: UNK
  9. BENLYSTA [Suspect]
     Active Substance: BELIMUMAB
     Dosage: 800 MG, UNK
     Dates: start: 20171020, end: 202005
  10. VITAMIN D [Concomitant]
     Active Substance: VITAMIN D NOS
     Indication: PRODUCT USED FOR UNKNOWN INDICATION
     Dosage: UNK

REACTIONS (39)
  - Cholelithiasis [Unknown]
  - Chest pain [Unknown]
  - Skin disorder [Unknown]
  - Swelling [Unknown]
  - Pain [Unknown]
  - Product dose omission issue [Unknown]
  - Back pain [Unknown]
  - Headache [Recovered/Resolved]
  - Malaise [Unknown]
  - Circumstance or information capable of leading to medication error [Not Recovered/Not Resolved]
  - Liver disorder [Unknown]
  - Influenza [Unknown]
  - Asthenia [Recovered/Resolved]
  - Diarrhoea [Unknown]
  - Abdominal pain [Unknown]
  - Cardiac function test abnormal [Unknown]
  - Overdose [Unknown]
  - Social problem [Unknown]
  - Lupus nephritis [Unknown]
  - Burning sensation [Unknown]
  - Nausea [Recovered/Resolved]
  - Hypotension [Recovered/Resolved]
  - Asthenia [Unknown]
  - Blood count abnormal [Unknown]
  - Renal disorder [Unknown]
  - Biliary colic [Unknown]
  - Ear disorder [Unknown]
  - Nervousness [Unknown]
  - Cough [Unknown]
  - Chills [Recovered/Resolved]
  - Muscle spasms [Unknown]
  - Underdose [Unknown]
  - Alopecia [Unknown]
  - Urine analysis abnormal [Unknown]
  - Inappropriate schedule of product administration [Recovered/Resolved]
  - Pruritus [Unknown]
  - Feeling abnormal [Unknown]
  - Dizziness [Recovered/Resolved]
  - Hypersensitivity [Unknown]
